FAERS Safety Report 18017999 (Version 1)
Quarter: 2020Q3

REPORT INFORMATION
  Report Type: Other
  Country: FR (occurrence: FR)
  Receive Date: 20200714
  Receipt Date: 20200714
  Transmission Date: 20201103
  Serious: Yes (Other)
  Sender: FDA-Public Use
  Company Number: FR-CADILA HEALTHCARE LIMITED-FR-ZYDUS-049922

PATIENT

DRUGS (3)
  1. DEPAKINE [VALPROIC ACID] [Suspect]
     Active Substance: VALPROIC ACID
     Indication: EPILEPSY
     Dosage: 1750 MILLIGRAM, QD
     Route: 048
     Dates: start: 2017, end: 20200113
  2. CANDESARTAN. [Suspect]
     Active Substance: CANDESARTAN
     Indication: HYPERTENSION
     Dosage: 16 MILLIGRAM, QD
     Route: 048
  3. SIMVASTATINE [Concomitant]
     Active Substance: SIMVASTATIN
     Indication: DYSLIPIDAEMIA
     Dosage: 10 MILLIGRAM, QD
     Route: 048
     Dates: end: 20200113

REACTIONS (1)
  - Inappropriate antidiuretic hormone secretion [Recovering/Resolving]

NARRATIVE: CASE EVENT DATE: 20200114
